FAERS Safety Report 5189607-4 (Version None)
Quarter: 2006Q4

REPORT INFORMATION
  Report Type: 
  Country: None (occurrence: None)
  Receive Date: 20061221
  Receipt Date: 20060605
  Transmission Date: 20070319
  Serious: No
  Sender: FDA-Public Use
  Company Number: US-AMGEN-KDL181877

PATIENT
  Sex: Female

DRUGS (11)
  1. ENBREL [Suspect]
     Indication: PSORIATIC ARTHROPATHY
     Dates: start: 20020605
  2. ENBREL [Suspect]
     Indication: PSORIASIS
  3. DOVONEX [Concomitant]
  4. ULTRAVATE [Concomitant]
  5. LASIX [Concomitant]
  6. ALDACTONE [Concomitant]
  7. UNSPECIFIED MEDICATION [Concomitant]
  8. SYNTHROID [Concomitant]
  9. ZINC [Concomitant]
  10. VITAMIN CAP [Concomitant]
  11. VITAMIN B-12 [Concomitant]

REACTIONS (1)
  - TOE DEFORMITY [None]
